FAERS Safety Report 13680594 (Version 2)
Quarter: 2017Q3

REPORT INFORMATION
  Report Type: Report from Study
  Country: GB (occurrence: GB)
  Receive Date: 20170623
  Receipt Date: 20170902
  Transmission Date: 20171127
  Serious: Yes (Death, Hospitalization, Other)
  Sender: FDA-Public Use
  Company Number: GB-AMGEN-GBRSL2017092463

PATIENT
  Age: 36 Year
  Sex: Male

DRUGS (1)
  1. ARANESP [Suspect]
     Active Substance: DARBEPOETIN ALFA
     Indication: PRODUCT USED FOR UNKNOWN INDICATION
     Dosage: 60 MUG, UNK
     Route: 065

REACTIONS (6)
  - Tuberculosis [Unknown]
  - Palliative care [Unknown]
  - Malaise [Unknown]
  - Death [Fatal]
  - Haematemesis [Unknown]
  - Red blood cell count decreased [Unknown]

NARRATIVE: CASE EVENT DATE: 20170824
